FAERS Safety Report 14182955 (Version 3)
Quarter: 2017Q4

REPORT INFORMATION
  Report Type: Spontaneous
  Country: JP (occurrence: JP)
  Receive Date: 20171113
  Receipt Date: 20171226
  Transmission Date: 20180321
  Serious: Yes (Other)
  Sender: FDA-Public Use
  Company Number: JP-GLAXOSMITHKLINE-JP2017JPN150539

PATIENT
  Age: 19 Year
  Sex: Female
  Weight: 48 kg

DRUGS (44)
  1. LAMICTAL [Suspect]
     Active Substance: LAMOTRIGINE
     Dosage: 16 MG, 1D
     Route: 048
     Dates: start: 20120126, end: 20120209
  2. LAMICTAL [Suspect]
     Active Substance: LAMOTRIGINE
     Dosage: 58 MG, 1D
     Route: 048
     Dates: start: 20120405, end: 20120411
  3. LAMICTAL [Suspect]
     Active Substance: LAMOTRIGINE
     Dosage: 125 MG, 1D
     Route: 048
     Dates: start: 20120621, end: 20120627
  4. LAMICTAL [Suspect]
     Active Substance: LAMOTRIGINE
     Dosage: 133 MG, 1D
     Route: 048
     Dates: start: 20120628, end: 20120704
  5. LAMICTAL [Suspect]
     Active Substance: LAMOTRIGINE
     Dosage: 158 MG, 1D
     Route: 048
     Dates: start: 20120726, end: 20120801
  6. LAMICTAL [Suspect]
     Active Substance: LAMOTRIGINE
     Dosage: 183 MG, 1D
     Route: 048
     Dates: start: 20120816, end: 20120822
  7. LAMICTAL [Suspect]
     Active Substance: LAMOTRIGINE
     Dosage: 350 MG, 1D
     Route: 048
     Dates: start: 20150614, end: 20150620
  8. LAMICTAL [Suspect]
     Active Substance: LAMOTRIGINE
     Dosage: 50 MG, 1D
     Route: 048
     Dates: start: 20120322, end: 20120404
  9. LAMICTAL [Suspect]
     Active Substance: LAMOTRIGINE
     Dosage: 91 MG, 1D
     Route: 048
     Dates: start: 20120510, end: 20120516
  10. LAMICTAL [Suspect]
     Active Substance: LAMOTRIGINE
     Dosage: 108 MG, 1D
     Route: 048
     Dates: start: 20120607, end: 20120613
  11. LAMICTAL [Suspect]
     Active Substance: LAMOTRIGINE
     Dosage: 141 MG, 1D
     Route: 048
     Dates: start: 20120705, end: 20120711
  12. LAMICTAL [Suspect]
     Active Substance: LAMOTRIGINE
     Dosage: 191 MG, 1D
     Route: 048
     Dates: start: 20120823, end: 20120829
  13. LAMICTAL [Suspect]
     Active Substance: LAMOTRIGINE
     Dosage: 225 MG, 1D
     Route: 048
     Dates: start: 20130929, end: 20131005
  14. LAMICTAL [Suspect]
     Active Substance: LAMOTRIGINE
     Dosage: 250 MG, 1D
     Route: 048
     Dates: start: 20131006, end: 20131012
  15. LAMICTAL [Suspect]
     Active Substance: LAMOTRIGINE
     Dosage: 275 MG, 1D
     Route: 048
     Dates: start: 20131013, end: 20131019
  16. LAMICTAL [Suspect]
     Active Substance: LAMOTRIGINE
     Dosage: 300 MG, 1D
     Route: 048
     Dates: start: 20131020, end: 20150613
  17. VALPROATE SODIUM. [Concomitant]
     Active Substance: VALPROATE SODIUM
     Dosage: 100 MG, 1D
     Dates: start: 20120816, end: 20120905
  18. LEVETIRACETAM. [Concomitant]
     Active Substance: LEVETIRACETAM
     Dosage: 1000 MG, 1D
     Dates: start: 20160713
  19. LAMICTAL [Suspect]
     Active Substance: LAMOTRIGINE
     Indication: EPILEPSY
     Dosage: 8 MG, 1D
     Route: 048
     Dates: start: 20120112, end: 20120125
  20. LAMICTAL [Suspect]
     Active Substance: LAMOTRIGINE
     Dosage: 100 MG, 1D
     Route: 048
     Dates: start: 20120517, end: 20120606
  21. LAMICTAL [Suspect]
     Active Substance: LAMOTRIGINE
     Dosage: 150 MG, 1D
     Route: 048
     Dates: start: 20120712, end: 20120725
  22. LAMICTAL [Suspect]
     Active Substance: LAMOTRIGINE
     Dosage: 166 MG, 1D
     Route: 048
     Dates: start: 20120802, end: 20120808
  23. LAMICTAL [Suspect]
     Active Substance: LAMOTRIGINE
     Dosage: 175 MG, 1D
     Route: 048
     Dates: start: 20120809, end: 20120815
  24. LAMICTAL [Suspect]
     Active Substance: LAMOTRIGINE
     Dosage: 300 MG, 1D
     Route: 048
     Dates: start: 20151015, end: 20170926
  25. LAMICTAL [Suspect]
     Active Substance: LAMOTRIGINE
     Dosage: 325 MG, 1D
     Route: 048
     Dates: start: 20170927, end: 20171003
  26. LAMICTAL [Suspect]
     Active Substance: LAMOTRIGINE
     Dosage: 350 MG, 1D
     Route: 048
     Dates: start: 20171004, end: 20171010
  27. VALPROATE SODIUM. [Concomitant]
     Active Substance: VALPROATE SODIUM
     Dosage: 200 MG, 1D
     Dates: start: 20120719, end: 20120815
  28. CLONAZEPAM. [Concomitant]
     Active Substance: CLONAZEPAM
     Dosage: 0.5 MG, 1D
     Dates: start: 20130929, end: 20131101
  29. BENIDIPINE HYDROCHLORIDE [Concomitant]
     Active Substance: BENIDIPINE HYDROCHLORIDE
     Dosage: 4 MG, 1D
     Dates: start: 20170924
  30. LAMICTAL [Suspect]
     Active Substance: LAMOTRIGINE
     Dosage: 75 MG, 1D
     Route: 048
     Dates: start: 20120419, end: 20120502
  31. LAMICTAL [Suspect]
     Active Substance: LAMOTRIGINE
     Dosage: 66 MG, 1D
     Route: 048
     Dates: start: 20120412, end: 20120418
  32. ARTIST [Suspect]
     Active Substance: CARVEDILOL
     Dosage: 5 MG, 1D
     Route: 048
     Dates: start: 20170924
  33. LAMICTAL [Suspect]
     Active Substance: LAMOTRIGINE
     Dosage: 25 MG, 1D
     Route: 048
     Dates: start: 20120210, end: 20120222
  34. LAMICTAL [Suspect]
     Active Substance: LAMOTRIGINE
     Dosage: 83 MG, 1D
     Route: 048
     Dates: start: 20120503, end: 20120509
  35. LAMICTAL [Suspect]
     Active Substance: LAMOTRIGINE
     Dosage: 33 MG, 1D
     Route: 048
     Dates: start: 20120223, end: 20120307
  36. LAMICTAL [Suspect]
     Active Substance: LAMOTRIGINE
     Dosage: 41 MG, 1D
     Route: 048
     Dates: start: 20120308, end: 20120321
  37. LAMICTAL [Suspect]
     Active Substance: LAMOTRIGINE
     Dosage: 116 MG, 1D
     Route: 048
     Dates: start: 20120614, end: 20120620
  38. LAMICTAL [Suspect]
     Active Substance: LAMOTRIGINE
     Dosage: 200 MG, 1D
     Route: 048
     Dates: start: 20120830, end: 20130928
  39. VALPROATE SODIUM. [Concomitant]
     Active Substance: VALPROATE SODIUM
     Dosage: 300 MG, 1D
     Dates: start: 20120607, end: 20120718
  40. LAMICTAL [Suspect]
     Active Substance: LAMOTRIGINE
     Dosage: 400 MG, 1D
     Route: 048
     Dates: start: 20150621, end: 20151014
  41. LAMICTAL [Suspect]
     Active Substance: LAMOTRIGINE
     Dosage: 125 MG, TID
     Route: 048
     Dates: start: 20171011, end: 20171017
  42. LAMICTAL [Suspect]
     Active Substance: LAMOTRIGINE
     Dosage: 400 MG, 1D
     Route: 048
     Dates: start: 20171018, end: 20171024
  43. LAMICTAL [Suspect]
     Active Substance: LAMOTRIGINE
     Dosage: 200 MG, BID
     Route: 048
     Dates: start: 20171025
  44. VALPROATE SODIUM. [Concomitant]
     Active Substance: VALPROATE SODIUM
     Dosage: 400 MG, 1D
     Dates: start: 20120112, end: 20120606

REACTIONS (8)
  - Anticonvulsant drug level decreased [Unknown]
  - Somnolence [Unknown]
  - Drug effect incomplete [Unknown]
  - Epilepsy [Recovered/Resolved]
  - Loss of consciousness [Recovered/Resolved]
  - Disorientation [Unknown]
  - Treatment noncompliance [Unknown]
  - Product use issue [Unknown]

NARRATIVE: CASE EVENT DATE: 20130929
